FAERS Safety Report 14269573 (Version 6)
Quarter: 2018Q4

REPORT INFORMATION
  Report Type: Report from Study
  Country: CO (occurrence: CO)
  Receive Date: 20171211
  Receipt Date: 20181213
  Transmission Date: 20190204
  Serious: Yes (Other)
  Sender: FDA-Public Use
  Company Number: CO-ASTELLAS-2017US030330

PATIENT
  Age: 59 Year
  Sex: Male
  Weight: 65 kg

DRUGS (2)
  1. VALSARTAN. [Concomitant]
     Active Substance: VALSARTAN
     Indication: HYPERTENSION
     Route: 048
  2. ENZALUTAMIDE [Suspect]
     Active Substance: ENZALUTAMIDE
     Indication: HORMONE-REFRACTORY PROSTATE CANCER
     Route: 048
     Dates: start: 20170721

REACTIONS (25)
  - Blood creatinine increased [Unknown]
  - Joint swelling [Recovered/Resolved]
  - Peripheral swelling [Recovered/Resolved]
  - Influenza [Not Recovered/Not Resolved]
  - Vomiting [Not Recovered/Not Resolved]
  - Asthenia [Not Recovered/Not Resolved]
  - Headache [Unknown]
  - Prostatic specific antigen increased [Not Recovered/Not Resolved]
  - Treatment noncompliance [Unknown]
  - Nipple pain [Not Recovered/Not Resolved]
  - Insomnia [Not Recovered/Not Resolved]
  - Pyrexia [Unknown]
  - Abdominal pain lower [Recovered/Resolved]
  - Pain in extremity [Recovering/Resolving]
  - Decreased appetite [Not Recovered/Not Resolved]
  - Rash [Recovered/Resolved]
  - Back pain [Not Recovered/Not Resolved]
  - Headache [Recovered/Resolved]
  - Drug ineffective [Unknown]
  - Malignant neoplasm progression [Unknown]
  - Diarrhoea [Not Recovered/Not Resolved]
  - Depression [Unknown]
  - Inflammation [Recovered/Resolved]
  - Inflammation [Not Recovered/Not Resolved]
  - Fall [Not Recovered/Not Resolved]

NARRATIVE: CASE EVENT DATE: 20170721
